FAERS Safety Report 12741075 (Version 2)
Quarter: 2016Q3

REPORT INFORMATION
  Report Type: Spontaneous
  Country: IT (occurrence: IT)
  Receive Date: 20160914
  Receipt Date: 20160920
  Transmission Date: 20161109
  Serious: Yes (Other)
  Sender: FDA-Public Use
  Company Number: IT-TEVA-691239ACC

PATIENT
  Age: 76 Year
  Sex: Female
  Weight: 42 kg

DRUGS (10)
  1. MEDROL - 16 MG COMPRESSE [Concomitant]
     Indication: DYSPNOEA
     Dosage: 16 MG
     Route: 048
  2. ATORVASTATIN [Concomitant]
     Active Substance: ATORVASTATIN
     Indication: HYPERCHOLESTEROLAEMIA
     Dosage: 40 MG
     Route: 048
  3. NIFEDIPINE. [Concomitant]
     Active Substance: NIFEDIPINE
     Indication: HYPERTENSION
     Dosage: 30 MG
     Route: 048
  4. PANTORC - 40 MG COMPRESSE GASTRORESISTENTI [Concomitant]
     Indication: ABDOMINAL PAIN UPPER
     Dosage: 40 MG
     Route: 048
  5. METFORMIN [Concomitant]
     Active Substance: METFORMIN HYDROCHLORIDE
     Indication: TYPE 2 DIABETES MELLITUS
     Dosage: 1000 MG
     Route: 048
  6. CARBOPLATIN. [Suspect]
     Active Substance: CARBOPLATIN
     Indication: LUNG NEOPLASM MALIGNANT
     Dosage: 150 MG CYCLICAL
     Dates: start: 20160713, end: 20160830
  7. PLETAL [Concomitant]
     Active Substance: CILOSTAZOL
     Indication: ARTERIAL DISORDER
     Dosage: 180 MG
     Route: 048
  8. TICLOPIDINE [Concomitant]
     Active Substance: TICLOPIDINE
     Indication: ARTERIAL DISORDER
     Dosage: 500 MG
     Route: 048
  9. KCL RETARD - 600 MG COMPRESSE A RILASCIO PROLUNGATO [Concomitant]
     Indication: MINERAL SUPPLEMENTATION
     Dosage: 600 MG
     Route: 048
  10. ETOPOSIDE SANDOZ - 20 MG/ML CONCENTRATO PER SOLUZIONE PER INFUSIONE [Concomitant]
     Indication: LUNG NEOPLASM MALIGNANT
     Dosage: 80 MG
     Dates: start: 20160713, end: 20160830

REACTIONS (2)
  - Dyspnoea [Recovering/Resolving]
  - Erythema [Recovering/Resolving]

NARRATIVE: CASE EVENT DATE: 20160830
